FAERS Safety Report 9797038 (Version 1)
Quarter: 2014Q1

REPORT INFORMATION
  Report Type: Spontaneous
  Country: GB (occurrence: GB)
  Receive Date: 20140105
  Receipt Date: 20140105
  Transmission Date: 20141002
  Serious: Yes (Hospitalization)
  Sender: FDA-Public Use
  Company Number: GB-MYLANLABS-2013S1028758

PATIENT
  Age: 39 Year
  Sex: Female
  Weight: 65 kg

DRUGS (2)
  1. CITALOPRAM [Suspect]
     Indication: DEPRESSION
  2. INFLIXIMAB [Suspect]
     Indication: PSORIASIS
     Dates: start: 201104

REACTIONS (3)
  - Urosepsis [Unknown]
  - Splenic rupture [Recovering/Resolving]
  - Peritonitis [Unknown]
